FAERS Safety Report 16276997 (Version 1)
Quarter: 2019Q2

REPORT INFORMATION
  Report Type: Spontaneous
  Country: US (occurrence: US)
  Receive Date: 20190504
  Receipt Date: 20190504
  Transmission Date: 20190711
  Serious: Yes (Hospitalization, Disabling)
  Sender: FDA-Public Use
  Company Number: None

PATIENT
  Age: 62 Year
  Sex: Male
  Weight: 85.73 kg

DRUGS (6)
  1. NORVASC [Concomitant]
     Active Substance: AMLODIPINE BESYLATE
  2. PROZAC [Concomitant]
     Active Substance: FLUOXETINE HYDROCHLORIDE
  3. FENTANYL TRANSDERMAL SYSTEM [Suspect]
     Active Substance: FENTANYL
     Indication: SPINAL STENOSIS
     Dosage: 1 PATCH EVERY 72 HOURS
     Dates: start: 20190501
  4. DIAZEPAM. [Concomitant]
     Active Substance: DIAZEPAM
  5. LIQUID HYDRO MORPHONE [Concomitant]
  6. LIPITOR [Concomitant]
     Active Substance: ATORVASTATIN CALCIUM

REACTIONS (5)
  - Insurance issue [None]
  - Fall [None]
  - Facial bones fracture [None]
  - Product substitution issue [None]
  - Malaise [None]
